FAERS Safety Report 25546469 (Version 1)
Quarter: 2025Q3

REPORT INFORMATION
  Report Type: Report from Study
  Country: US (occurrence: US)
  Receive Date: 20250713
  Receipt Date: 20250713
  Transmission Date: 20251020
  Serious: Yes (Death)
  Sender: ABBVIE
  Company Number: US-ABBVIE-6366905

PATIENT
  Age: 60 Year
  Sex: Male

DRUGS (1)
  1. RINVOQ [Suspect]
     Active Substance: UPADACITINIB
     Indication: Rheumatoid arthritis
     Dosage: STRENGTH 15 MG
     Route: 048

REACTIONS (3)
  - Hepatic cirrhosis [Fatal]
  - Respiratory failure [Fatal]
  - Hepatic encephalopathy [Fatal]

NARRATIVE: CASE EVENT DATE: 20250419
